FAERS Safety Report 15066509 (Version 1)
Quarter: 2018Q2

REPORT INFORMATION
  Report Type: Spontaneous
  Country: US (occurrence: US)
  Receive Date: 20180626
  Receipt Date: 20180626
  Transmission Date: 20180711
  Serious: Yes (Other)
  Sender: FDA-Public Use
  Company Number: US-SA-2018SA163103

PATIENT
  Age: 57 Year
  Sex: Female

DRUGS (4)
  1. DUPIXENT [Suspect]
     Active Substance: DUPILUMAB
     Dosage: 300 MG, QOW
     Dates: start: 20170920
  2. LOTREL [AMLODIPINE BESILATE;BENAZEPRIL HYDROCHLORIDE] [Concomitant]
  3. SINGULAIR [Concomitant]
     Active Substance: MONTELUKAST SODIUM
  4. SERZONE [Concomitant]
     Active Substance: NEFAZODONE HYDROCHLORIDE

REACTIONS (2)
  - Gastrointestinal disorder [Unknown]
  - Drug dose omission [Unknown]

NARRATIVE: CASE EVENT DATE: 20180613
